FAERS Safety Report 4308058-5 (Version None)
Quarter: 2004Q1

REPORT INFORMATION
  Report Type: 
  Country: None (occurrence: None)
  Receive Date: 20040301
  Receipt Date: 20030421
  Transmission Date: 20041129
  Serious: No
  Sender: FDA-Public Use
  Company Number: US-BRISTOL-MYERS SQUIBB COMPANY-12247961

PATIENT
  Age: 77 Year
  Sex: Male
  Weight: 109 kg

DRUGS (1)
  1. GLUCOPHAGE [Suspect]
     Indication: PROPHYLAXIS
     Route: 048

REACTIONS (5)
  - ABDOMINAL DISCOMFORT [None]
  - DYSGEUSIA [None]
  - DYSPEPSIA [None]
  - ERUCTATION [None]
  - FLATULENCE [None]
